FAERS Safety Report 14678708 (Version 1)
Quarter: 2018Q1

REPORT INFORMATION
  Report Type: Spontaneous
  Country: US (occurrence: US)
  Receive Date: 20180326
  Receipt Date: 20180326
  Transmission Date: 20180509
  Serious: No
  Sender: FDA-Public Use
  Company Number: US-ELI_LILLY_AND_COMPANY-US201803009451

PATIENT

DRUGS (1)
  1. HUMULIN R [Suspect]
     Active Substance: INSULIN HUMAN
     Indication: HYPERGLYCAEMIA
     Dosage: 152 U, UNKNOWN
     Route: 065

REACTIONS (2)
  - Hypoglycaemia [Recovered/Resolved]
  - Wrong technique in product usage process [Recovered/Resolved]
